FAERS Safety Report 15114001 (Version 5)
Quarter: 2018Q4

REPORT INFORMATION
  Report Type: Report from Study
  Country: CA (occurrence: CA)
  Receive Date: 20180706
  Receipt Date: 20181016
  Transmission Date: 20190204
  Serious: Yes (Other)
  Sender: FDA-Public Use
  Company Number: CA-ROCHE-2150339

PATIENT
  Sex: Male

DRUGS (12)
  1. OCREVUS [Suspect]
     Active Substance: OCRELIZUMAB
     Indication: RELAPSING-REMITTING MULTIPLE SCLEROSIS
     Dosage: 300MG DAY 1, 15 THEN 600MG Q 6MONTHS
     Route: 042
     Dates: start: 20180314
  2. PREGABALIN. [Concomitant]
     Active Substance: PREGABALIN
     Indication: PAIN
     Dosage: SINCE 10 YEARS
     Route: 048
  3. METHYLPHENIDATE. [Concomitant]
     Active Substance: METHYLPHENIDATE
     Indication: ATTENTION DEFICIT/HYPERACTIVITY DISORDER
     Dosage: TWO IN THE MORNING AND ONE AT NOON OF THE 10 MG, SINCE 2 YEARS
     Route: 048
  4. FENOFIBRATE. [Concomitant]
     Active Substance: FENOFIBRATE
     Indication: BLOOD CHOLESTEROL
     Dosage: SINCE MANY YEARS
     Route: 048
  5. HYDROMORPH CONTIN [Concomitant]
     Active Substance: HYDROMORPHONE
     Indication: PAIN
     Dosage: SINCE 5 TO 7 YEARS
     Route: 048
  6. FERROUS SULFATE. [Concomitant]
     Active Substance: FERROUS SULFATE
     Dosage: SINCE 20 TO 30 YEARS
     Route: 048
  7. DULOXETINE. [Concomitant]
     Active Substance: DULOXETINE
     Dosage: SINCE 2 YEARS
     Route: 048
  8. VENLAFAXINE XR [Concomitant]
     Active Substance: VENLAFAXINE HYDROCHLORIDE
     Dosage: SINCE ALMOST A YEAR
     Route: 048
  9. RESOTRAN [Concomitant]
     Active Substance: PRUCALOPRIDE SUCCINATE
     Dosage: FOR THE BLADDER, SINCE 7 YEARS
     Route: 048
  10. RELAXA (CANADA) [Concomitant]
     Indication: CONSTIPATION
     Dosage: SINCE 5 YEARS
     Route: 065
  11. FAMPYRA [Concomitant]
     Active Substance: DALFAMPRIDINE
     Dosage: FOR WALKING BETTER
     Route: 065
     Dates: start: 2014
  12. MODAFINIL. [Concomitant]
     Active Substance: MODAFINIL
     Dosage: TWO IN THE MORNING,SINCE 5 YEARS
     Route: 048

REACTIONS (1)
  - Fracture delayed union [Not Recovered/Not Resolved]
